FAERS Safety Report 10146209 (Version 2)
Quarter: 2014Q2

REPORT INFORMATION
  Report Type: Spontaneous
  Country: BR (occurrence: BR)
  Receive Date: 20140501
  Receipt Date: 20140501
  Transmission Date: 20141212
  Serious: Yes (Other)
  Sender: FDA-Public Use
  Company Number: BR-BAYER-2014-042838

PATIENT
  Age: 36 Year
  Sex: Female
  Weight: 61.22 kg

DRUGS (2)
  1. MIRENA [Suspect]
     Dosage: 20 ?G/D, CONT
     Route: 015
     Dates: start: 20131014, end: 20140324
  2. QLAIRA [Suspect]
     Dosage: 1 DF, QD
     Route: 048
     Dates: start: 20140324

REACTIONS (5)
  - Device dislocation [None]
  - Genital haemorrhage [Not Recovered/Not Resolved]
  - Amenorrhoea [Recovered/Resolved]
  - Off label use [None]
  - Metrorrhagia [Recovered/Resolved]
